FAERS Safety Report 15812894 (Version 1)
Quarter: 2019Q1

REPORT INFORMATION
  Report Type: Spontaneous
  Country: IE (occurrence: IE)
  Receive Date: 20190111
  Receipt Date: 20190111
  Transmission Date: 20190417
  Serious: Yes (Hospitalization)
  Sender: FDA-Public Use
  Company Number: IE-LINDE-IE-LHC-2019005

PATIENT
  Sex: Male

DRUGS (1)
  1. LIQUID OXYGEN [Suspect]
     Active Substance: OXYGEN
     Indication: ACCIDENTAL EXPOSURE TO PRODUCT
     Route: 065

REACTIONS (2)
  - Accidental exposure to product [Recovered/Resolved]
  - Respiratory fume inhalation disorder [Recovered/Resolved]

NARRATIVE: CASE EVENT DATE: 20181224
